FAERS Safety Report 6220749-8 (Version None)
Quarter: 2009Q2

REPORT INFORMATION
  Report Type: 
  Country: None (occurrence: None)
  Receive Date: 20090610
  Receipt Date: 20090602
  Transmission Date: 20091009
  Serious: Yes (Other)
  Sender: FDA-Public Use
  Company Number: PHHY2009CA01106

PATIENT
  Sex: Male

DRUGS (6)
  1. SANDOSTATIN LAR [Suspect]
     Indication: ACROMEGALY
     Dosage: 30 MG, QMO
     Route: 030
     Dates: start: 19960830
  2. SOMAVENT [Concomitant]
  3. LITHIUM [Concomitant]
  4. LEVOTHYROXINE [Concomitant]
  5. CORTEF [Concomitant]
     Dosage: UNK
  6. TESTOSTERONE [Suspect]

REACTIONS (2)
  - HIP ARTHROPLASTY [None]
  - KNEE ARTHROPLASTY [None]
